FAERS Safety Report 21359601 (Version 1)
Quarter: 2022Q3

REPORT INFORMATION
  Report Type: Spontaneous
  Country: US (occurrence: US)
  Receive Date: 20220921
  Receipt Date: 20220921
  Transmission Date: 20221027
  Serious: Yes (Hospitalization, Other)
  Sender: FDA-Public Use
  Company Number: US-PFIZER INC-202201110819

PATIENT
  Age: 69 Year
  Sex: Female

DRUGS (1)
  1. ZYVOX [Suspect]
     Active Substance: LINEZOLID
     Indication: Wound
     Dosage: 600 MG

REACTIONS (6)
  - Sepsis [Recovered/Resolved]
  - Fall [Unknown]
  - Cellulitis [Unknown]
  - Diabetes mellitus [Unknown]
  - Skin ulcer [Not Recovered/Not Resolved]
  - Off label use [Unknown]
